FAERS Safety Report 22955089 (Version 8)
Quarter: 2024Q2

REPORT INFORMATION
  Report Type: Spontaneous
  Country: US (occurrence: US)
  Receive Date: 20230918
  Receipt Date: 20240506
  Transmission Date: 20240715
  Serious: Yes (Hospitalization, Other)
  Sender: FDA-Public Use
  Company Number: US-PFIZER INC-202300300018

PATIENT
  Age: 76 Year
  Sex: Male
  Weight: 95.238 kg

DRUGS (6)
  1. INLYTA [Suspect]
     Active Substance: AXITINIB
     Indication: Renal cancer
     Dosage: UNK
     Dates: start: 202302
  2. INLYTA [Suspect]
     Active Substance: AXITINIB
     Dosage: 3 MG, 2X/DAY
     Route: 048
  3. INLYTA [Suspect]
     Active Substance: AXITINIB
     Dosage: 1 MG
     Dates: end: 20240123
  4. INLYTA [Suspect]
     Active Substance: AXITINIB
     Dosage: 6MG PILLS PER DAY (1 MG EACH)
     Dates: start: 202303
  5. KEYTRUDA [Suspect]
     Active Substance: PEMBROLIZUMAB
     Indication: Renal cancer
     Dosage: UNK
     Dates: start: 202302, end: 20240326
  6. KEYTRUDA [Suspect]
     Active Substance: PEMBROLIZUMAB
     Dosage: 200 LITER (?) ONCE EVERY 3 WEEKS
     Dates: start: 202403

REACTIONS (7)
  - Blood creatinine increased [Unknown]
  - Renal failure [Unknown]
  - Dehydration [Unknown]
  - Nephritis [Unknown]
  - Protein total increased [Unknown]
  - Pruritus [Unknown]
  - Sleep disorder [Unknown]

NARRATIVE: CASE EVENT DATE: 20240326
